FAERS Safety Report 10881876 (Version 1)
Quarter: 2015Q1

REPORT INFORMATION
  Report Type: Spontaneous
  Country: US (occurrence: None)
  Receive Date: 20150225
  Receipt Date: 20150225
  Transmission Date: 20150721
  Serious: Yes (Other)
  Sender: FDA-Public Use
  Company Number: None

PATIENT
  Age: 73 Year
  Sex: Female
  Weight: 66.68 kg

DRUGS (1)
  1. PRESERVISION [Suspect]
     Active Substance: MINERALS\VITAMINS
     Indication: MACULAR DEGENERATION
     Dosage: 2 SOFT GELS TWICE DAILY BY MOUTH
     Route: 048
     Dates: start: 2013

REACTIONS (3)
  - Product physical issue [None]
  - Underdose [None]
  - Drug dispensing error [None]

NARRATIVE: CASE EVENT DATE: 201411
